FAERS Safety Report 8880607 (Version 1)
Quarter: 2012Q4

REPORT INFORMATION
  Report Type: 
  Country: US (occurrence: US)
  Receive Date: 20121101
  Receipt Date: 20121101
  Transmission Date: 20130627
  Serious: No
  Sender: FDA-Public Use
  Company Number: US-009507513-1210USA004414

PATIENT
  Age: 57 Year
  Sex: Female

DRUGS (2)
  1. RIBAVIRIN [Suspect]
     Dosage: UNK
  2. VICTRELIS [Suspect]
     Indication: HEPATITIS C
     Dosage: UNK
     Dates: start: 2012

REACTIONS (7)
  - Chest pain [Unknown]
  - Feeling hot [Unknown]
  - Dysgeusia [Unknown]
  - Asthenia [Unknown]
  - Dizziness [Unknown]
  - Dizziness [Unknown]
  - Nausea [Unknown]
